FAERS Safety Report 9518592 (Version 1)
Quarter: 2013Q1

REPORT INFORMATION
  Report Type: Spontaneous
  Country: US (occurrence: None)
  Receive Date: 20130305
  Receipt Date: 20130305
  Transmission Date: 20140127
  Serious: Yes (Hospitalization)
  Sender: FDA-Public Use
  Company Number: 163-21880-11123604

PATIENT
  Sex: 0

DRUGS (10)
  1. REVLIMID [Suspect]
     Indication: MYELODYSPLASTIC SYNDROME
     Route: 048
     Dates: start: 201112
  2. FUROSEMIDE (FUROSEMIDE) [Concomitant]
  3. DULCOLAX (BISACODYL) [Concomitant]
  4. SIMVASTATIN (SIMVASTATIN) [Concomitant]
  5. SOTALOL [Concomitant]
  6. DIPYRIDAMOLE (DIPYRIDAMOLE) [Concomitant]
  7. LATANOPROST (LATANOPROST) (NONE) [Concomitant]
  8. MICARDIS (TELMISARTAN) [Concomitant]
  9. DORZOL/TIMOL (COSOPT) [Concomitant]
  10. POTASSIUM (POTASSIUM) [Concomitant]

REACTIONS (1)
  - Pneumonia [None]
